FAERS Safety Report 17476601 (Version 1)
Quarter: 2020Q1

REPORT INFORMATION
  Report Type: Spontaneous
  Country: US (occurrence: US)
  Receive Date: 20200228
  Receipt Date: 20200228
  Transmission Date: 20200409
  Serious: No
  Sender: FDA-Public Use
  Company Number: US-GALDERMA-US19047834

PATIENT
  Age: 26 Year
  Sex: Female

DRUGS (5)
  1. PROACTIV MD DAILY OIL CONTROL SPF 30 [Suspect]
     Active Substance: AVOBENZONE\OCTISALATE\OCTOCRYLENE
     Indication: PHOTOSENSITIVITY REACTION
     Route: 061
     Dates: start: 20190713, end: 20190714
  2. PROACTIV MD ADAPALENE ACNE TREATMENT [Suspect]
     Active Substance: ADAPALENE
     Indication: PHOTOSENSITIVITY REACTION
     Dosage: 0.1%
     Route: 061
     Dates: start: 20190713, end: 20190714
  3. PROACTIV GREEN TEA MOISTURIZER [Concomitant]
     Active Substance: COSMETICS
     Indication: PHOTOSENSITIVITY REACTION
     Route: 061
     Dates: start: 20190713, end: 20190714
  4. PROACTIV MD DAILY OIL CONTROL SPF 30 [Suspect]
     Active Substance: AVOBENZONE\OCTISALATE\OCTOCRYLENE
     Indication: PHOTOSENSITIVITY REACTION
     Route: 061
     Dates: start: 20190713, end: 20190714
  5. PROACTIV MD DEEP CLEANSING FACE WASH [Concomitant]
     Active Substance: COSMETICS
     Indication: PHOTOSENSITIVITY REACTION
     Route: 061
     Dates: start: 20190713, end: 20190714

REACTIONS (7)
  - Skin irritation [Not Recovered/Not Resolved]
  - Dry skin [Not Recovered/Not Resolved]
  - Scar [Not Recovered/Not Resolved]
  - Pruritus [Not Recovered/Not Resolved]
  - Condition aggravated [Not Recovered/Not Resolved]
  - Skin burning sensation [Not Recovered/Not Resolved]
  - Product use in unapproved indication [Recovered/Resolved]

NARRATIVE: CASE EVENT DATE: 20190713
